FAERS Safety Report 20557088 (Version 1)
Quarter: 2022Q1

REPORT INFORMATION
  Report Type: Spontaneous
  Country: CA (occurrence: CA)
  Receive Date: 20220307
  Receipt Date: 20220307
  Transmission Date: 20220423
  Serious: Yes (Hospitalization, Other)
  Sender: FDA-Public Use
  Company Number: CA-APOTEX-2016AP007360

PATIENT
  Age: 58 Year
  Sex: Female

DRUGS (32)
  1. LEVETIRACETAM [Suspect]
     Active Substance: LEVETIRACETAM
     Indication: Status epilepticus
     Dosage: UNK
     Route: 065
  2. LEVETIRACETAM [Suspect]
     Active Substance: LEVETIRACETAM
     Indication: Maintenance of anaesthesia
     Dosage: UNK
     Route: 048
  3. LEVETIRACETAM [Suspect]
     Active Substance: LEVETIRACETAM
     Indication: Seizure
  4. MIDAZOLAM [Suspect]
     Active Substance: MIDAZOLAM
     Indication: Status epilepticus
     Dosage: UNK, UNKNOWN
     Route: 030
  5. MIDAZOLAM [Suspect]
     Active Substance: MIDAZOLAM
     Indication: Electroencephalogram abnormal
  6. MIDAZOLAM [Suspect]
     Active Substance: MIDAZOLAM
     Indication: Seizure
  7. VALPROIC ACID [Suspect]
     Active Substance: VALPROIC ACID
     Indication: Status epilepticus
     Dosage: UNK, UNKNOWN
     Route: 065
  8. VALPROIC ACID [Suspect]
     Active Substance: VALPROIC ACID
     Indication: Maintenance of anaesthesia
  9. VALPROIC ACID [Suspect]
     Active Substance: VALPROIC ACID
     Indication: Seizure
  10. PHENYTOIN [Suspect]
     Active Substance: PHENYTOIN
     Indication: Status epilepticus
     Dosage: UNK
     Route: 065
  11. PHENYTOIN [Suspect]
     Active Substance: PHENYTOIN
     Indication: Maintenance of anaesthesia
  12. PHENYTOIN [Suspect]
     Active Substance: PHENYTOIN
     Indication: Seizure
  13. PROPOFOL [Suspect]
     Active Substance: PROPOFOL
     Indication: Status epilepticus
     Dosage: UNK
     Route: 065
  14. PROPOFOL [Suspect]
     Active Substance: PROPOFOL
     Indication: Electroencephalogram abnormal
  15. PROPOFOL [Suspect]
     Active Substance: PROPOFOL
     Indication: Maintenance of anaesthesia
  16. PROPOFOL [Suspect]
     Active Substance: PROPOFOL
     Indication: Seizure
  17. KETAMINE HYDROCHLORIDE [Suspect]
     Active Substance: KETAMINE HYDROCHLORIDE
     Indication: Status epilepticus
     Dosage: UNK
     Route: 030
  18. KETAMINE HYDROCHLORIDE [Suspect]
     Active Substance: KETAMINE HYDROCHLORIDE
     Indication: Maintenance of anaesthesia
  19. KETAMINE HYDROCHLORIDE [Suspect]
     Active Substance: KETAMINE HYDROCHLORIDE
     Indication: Seizure
  20. FORANE [Suspect]
     Active Substance: ISOFLURANE
     Indication: Status epilepticus
     Dosage: UNK
     Route: 065
  21. FORANE [Suspect]
     Active Substance: ISOFLURANE
     Indication: Maintenance of anaesthesia
  22. FORANE [Suspect]
     Active Substance: ISOFLURANE
     Indication: Seizure
  23. ISOFLURANE [Suspect]
     Active Substance: ISOFLURANE
     Indication: Seizure
     Dosage: UNK
     Route: 065
  24. ISOFLURANE [Suspect]
     Active Substance: ISOFLURANE
     Indication: Status epilepticus
  25. METHYLPREDNISOLONE SODIUM SUCCINATE [Suspect]
     Active Substance: METHYLPREDNISOLONE SODIUM SUCCINATE
     Indication: Product used for unknown indication
     Dosage: 4 GRAM
     Route: 042
  26. PHENOBARBITAL [Suspect]
     Active Substance: PHENOBARBITAL
     Indication: Status epilepticus
     Dosage: 150 MILLIGRAM, TWO TIMES A DAY
     Route: 065
  27. PHENOBARBITAL [Suspect]
     Active Substance: PHENOBARBITAL
     Indication: Maintenance of anaesthesia
  28. PHENOBARBITAL [Suspect]
     Active Substance: PHENOBARBITAL
     Indication: Seizure
  29. PIPERACILLINTAZOBACTAM ORPHA [Concomitant]
     Indication: Appendicitis
     Dosage: UNK
     Route: 065
  30. METHYLPREDNISOLONE [Concomitant]
     Active Substance: METHYLPREDNISOLONE
     Indication: Status epilepticus
     Dosage: 4 GRAM
     Route: 042
  31. MIDAZOLAM [Concomitant]
     Active Substance: MIDAZOLAM
     Indication: Status epilepticus
     Dosage: UNK
     Route: 065
  32. VALPROIC ACID [Concomitant]
     Active Substance: VALPROIC ACID
     Indication: Status epilepticus
     Dosage: UNK
     Route: 065

REACTIONS (21)
  - Carbohydrate antigen 125 increased [Recovered/Resolved]
  - Cardiomegaly [Recovered/Resolved]
  - Hypotension [Recovered/Resolved]
  - Intestinal ischaemia [Recovered/Resolved]
  - Off label use [Recovered/Resolved]
  - Systemic inflammatory response syndrome [Recovered/Resolved]
  - Procedural intestinal perforation [Recovered/Resolved]
  - Ultrasound ovary abnormal [Recovered/Resolved]
  - Left ventricular hypertrophy [Recovered/Resolved]
  - Abscess [Recovered/Resolved]
  - Pneumatosis [Recovered/Resolved]
  - Abdominal distension [Recovered/Resolved]
  - Intra-abdominal pressure increased [Recovered/Resolved]
  - Necrosis ischaemic [Recovered/Resolved]
  - Perforation [Recovered/Resolved]
  - Drug ineffective for unapproved indication [Recovered/Resolved]
  - Vomiting [Recovered/Resolved]
  - Drug ineffective [Recovered/Resolved]
  - Maternal exposure during pregnancy [Recovered/Resolved]
  - Intestinal infarction [Recovered/Resolved]
  - Large intestine perforation [Recovered/Resolved]
